FAERS Safety Report 4522155-0 (Version None)
Quarter: 2004Q4

REPORT INFORMATION
  Report Type: 
  Country: None (occurrence: None)
  Receive Date: 20041209
  Receipt Date: 20041129
  Transmission Date: 20050328
  Serious: Yes (Hospitalization)
  Sender: FDA-Public Use
  Company Number: FR-ROCHE-387441

PATIENT
  Age: 52 Year
  Sex: Female
  Weight: 88 kg

DRUGS (1)
  1. XELODA [Suspect]
     Route: 048
     Dates: start: 20041006, end: 20041008

REACTIONS (5)
  - ASTHENIA [None]
  - CHEST PAIN [None]
  - PALPITATIONS [None]
  - SYNCOPE [None]
  - TROPONIN INCREASED [None]
